FAERS Safety Report 9636128 (Version 1)
Quarter: 2013Q4

REPORT INFORMATION
  Report Type: Spontaneous
  Country: US (occurrence: US)
  Receive Date: 20131021
  Receipt Date: 20131021
  Transmission Date: 20140711
  Serious: Yes (Disabling, Other)
  Sender: FDA-Public Use
  Company Number: US-AMGEN-USASP2013072981

PATIENT
  Age: 55 Year
  Sex: Male

DRUGS (1)
  1. ENBREL [Suspect]
     Indication: RHEUMATOID ARTHRITIS
     Dosage: 50 MG, QWK
     Route: 065
     Dates: start: 20030904

REACTIONS (12)
  - Loss of consciousness [Recovered/Resolved]
  - Dizziness [Recovered/Resolved]
  - Disability [Not Recovered/Not Resolved]
  - Fall [Recovered/Resolved]
  - Memory impairment [Not Recovered/Not Resolved]
  - Rheumatoid arthritis [Not Recovered/Not Resolved]
  - Incorrect route of drug administration [Recovered/Resolved]
  - Bone pain [Not Recovered/Not Resolved]
  - Foot deformity [Not Recovered/Not Resolved]
  - Unevaluable event [Not Recovered/Not Resolved]
  - Injection site erythema [Recovered/Resolved]
  - Clavicle fracture [Recovered/Resolved]
